FAERS Safety Report 16124798 (Version 1)
Quarter: 2019Q1

REPORT INFORMATION
  Report Type: Spontaneous
  Country: RU (occurrence: RU)
  Receive Date: 20190327
  Receipt Date: 20190327
  Transmission Date: 20190418
  Serious: Yes (Hospitalization, Other)
  Sender: FDA-Public Use
  Company Number: RU-BAYER-2019-056783

PATIENT
  Age: 30 Year
  Sex: Female
  Weight: 60 kg

DRUGS (5)
  1. PREDNISOLONE. [Concomitant]
     Active Substance: PREDNISOLONE
     Dosage: 12 MG, QD
  2. ENOXAPARIN SODIUM. [Interacting]
     Active Substance: ENOXAPARIN SODIUM
     Indication: THROMBOSIS PROPHYLAXIS
  3. FOLIC ACID. [Concomitant]
     Active Substance: FOLIC ACID
     Dosage: 1 MG, QD
  4. ASPIRIN CARDIO 100 MG [Suspect]
     Active Substance: ASPIRIN
     Dosage: 100 MG, UNK
  5. PROGESTERONE. [Concomitant]
     Active Substance: PROGESTERONE

REACTIONS (10)
  - Maternal exposure during pregnancy [None]
  - Postpartum haemorrhage [None]
  - Abortion threatened [Recovered/Resolved]
  - Pre-eclampsia [None]
  - Vomiting [None]
  - Labelled drug-drug interaction medication error [None]
  - Haemorrhage in pregnancy [None]
  - Haemodynamic test abnormal [None]
  - Umbilical cord vascular disorder [None]
  - Antiphospholipid antibodies positive [None]
